FAERS Safety Report 19369504 (Version 1)
Quarter: 2021Q2

REPORT INFORMATION
  Report Type: Spontaneous
  Country: US (occurrence: US)
  Receive Date: 20210602
  Receipt Date: 20210602
  Transmission Date: 20210717
  Serious: Yes (Life-Threatening, Hospitalization)
  Sender: FDA-Public Use
  Company Number: US-B.I. PHARMACEUTICALS,INC./RIDGEFIELD-2021-BI-106481

PATIENT
  Age: 15 Year
  Sex: Female

DRUGS (1)
  1. CATAPRESAN [Suspect]
     Active Substance: CLONIDINE
     Indication: HYPERTENSION
     Dosage: ROUTE: INGESTION? CLONIDINE HCL 100 MCG
     Route: 048

REACTIONS (6)
  - Bradycardia [Unknown]
  - Mental disorder [Unknown]
  - Mental status changes [Recovering/Resolving]
  - Overdose [Unknown]
  - Posterior reversible encephalopathy syndrome [Unknown]
  - Hypertension [Unknown]
